FAERS Safety Report 5153945-1 (Version None)
Quarter: 2006Q4

REPORT INFORMATION
  Report Type: 
  Country: None (occurrence: None)
  Receive Date: 20061120
  Receipt Date: 20061019
  Transmission Date: 20070319
  Serious: Yes (Life-Threatening)
  Sender: FDA-Public Use
  Company Number: PHNU2006DE03488

PATIENT
  Age: 52 Year
  Sex: Male
  Weight: 186 kg

DRUGS (1)
  1. GLEEVEC [Suspect]
     Indication: CHRONIC MYELOID LEUKAEMIA
     Dosage: 600 MG/DAY
     Route: 048
     Dates: start: 20000101, end: 20060801

REACTIONS (2)
  - DRUG INEFFECTIVE [None]
  - SMALL CELL LUNG CANCER STAGE UNSPECIFIED [None]
